FAERS Safety Report 5625473-8 (Version None)
Quarter: 2008Q1

REPORT INFORMATION
  Report Type: 
  Country: None (occurrence: None)
  Receive Date: 20080208
  Receipt Date: 20080129
  Transmission Date: 20080703
  Serious: Yes (Other)
  Sender: FDA-Public Use
  Company Number: 2008002561

PATIENT
  Age: 45 Year
  Sex: Female
  Weight: 57.6068 kg

DRUGS (1)
  1. BENGAY ULTRA STRENGTH (MENTHOL, CAMPHOR, METHYL SALICYLATE) [Suspect]
     Indication: MYALGIA
     Dosage: LITTLE DAB, TOPICAL
     Route: 061
     Dates: start: 20080127, end: 20080127

REACTIONS (3)
  - BLISTER [None]
  - BURNS SECOND DEGREE [None]
  - CAUSTIC INJURY [None]
